FAERS Safety Report 9382299 (Version 1)
Quarter: 2013Q3

REPORT INFORMATION
  Report Type: Spontaneous
  Country: US (occurrence: None)
  Receive Date: 20130702
  Receipt Date: 20130702
  Transmission Date: 20140515
  Serious: No
  Sender: FDA-Public Use
  Company Number: None

PATIENT
  Age: 76 Year
  Sex: Male
  Weight: 83.46 kg

DRUGS (2)
  1. TRAMADOL [Suspect]
     Indication: ARTHRITIS
     Dosage: 2 TABLET
     Dates: end: 201306
  2. TRAMADOL [Suspect]
     Indication: ARTHRITIS
     Dosage: 2 TABLET
     Dates: start: 201306

REACTIONS (3)
  - Agitation [None]
  - Restlessness [None]
  - Poor quality sleep [None]
